FAERS Safety Report 21945594 (Version 1)
Quarter: 2023Q1

REPORT INFORMATION
  Report Type: Spontaneous
  Country: IN (occurrence: IN)
  Receive Date: 20230202
  Receipt Date: 20230202
  Transmission Date: 20230418
  Serious: Yes (Other)
  Sender: FDA-Public Use
  Company Number: IN-GUERBET / CHOKSI BROTHERS PRIVATE-IN-20230002

PATIENT
  Age: 55 Year
  Sex: Male

DRUGS (3)
  1. LIPIODOL [Suspect]
     Active Substance: ETHIODIZED OIL
     Indication: Therapeutic embolisation
     Dosage: 3:2:1 RATIO OF AIR: 3% STS: LIPIODOL
     Route: 042
  2. LIPIODOL [Suspect]
     Active Substance: ETHIODIZED OIL
     Dosage: LIPIODOL MIXED WITH 50% GLUE
     Route: 042
  3. sodium tetradecyl-sulfate [Concomitant]
     Indication: Therapeutic embolisation
     Dosage: 3:2:1 RATIO OF AIR: 3% STS: LIPIODOL.
     Route: 042

REACTIONS (1)
  - Haemoperitoneum [Recovered/Resolved]
